FAERS Safety Report 4695420-4 (Version None)
Quarter: 2005Q2

REPORT INFORMATION
  Report Type: 
  Country: None (occurrence: None)
  Receive Date: 20050620
  Receipt Date: 20050620
  Transmission Date: 20051028
  Serious: Yes (Disabling)
  Sender: FDA-Public Use
  Company Number: None

PATIENT
  Sex: Female
  Weight: 63.5036 kg

DRUGS (4)
  1. ZETIA [Suspect]
     Indication: ARTERIAL OCCLUSIVE DISEASE
     Dosage: 10 MG     1/DAY    ORAL
     Route: 048
     Dates: start: 20040210, end: 20050419
  2. ZETIA [Suspect]
     Indication: LOW DENSITY LIPOPROTEIN INCREASED
     Dosage: 10 MG     1/DAY    ORAL
     Route: 048
     Dates: start: 20040210, end: 20050419
  3. ZETIA [Suspect]
     Indication: PROPHYLAXIS
     Dosage: 10 MG     1/DAY    ORAL
     Route: 048
     Dates: start: 20040210, end: 20050419
  4. LOPRESSOR [Concomitant]

REACTIONS (4)
  - ARTHRALGIA [None]
  - DIFFICULTY IN WALKING [None]
  - DRUG EFFECT DECREASED [None]
  - PAIN IN EXTREMITY [None]
